FAERS Safety Report 5457630-8 (Version None)
Quarter: 2007Q3

REPORT INFORMATION
  Report Type: 
  Country: None (occurrence: None)
  Receive Date: 20070918
  Receipt Date: 20070912
  Transmission Date: 20080115
  Serious: Yes (Hospitalization)
  Sender: FDA-Public Use
  Company Number: JP-BOEHRINGER INGELHEIM PHARMACEUTICALS, INC.-2007-BP-20913NB

PATIENT
  Age: 70 Year
  Sex: Male
  Weight: 66 kg

DRUGS (4)
  1. MICARDIS [Suspect]
     Indication: HYPERTENSION
     Route: 048
     Dates: start: 20060905
  2. METHYCOBAL [Concomitant]
     Indication: NERVE INJURY
     Route: 048
  3. ZOLPIDEM [Concomitant]
     Indication: INSOMNIA
     Route: 048
  4. LANSOPRAZOLE [Concomitant]
     Indication: GASTRIC ULCER
     Route: 048
     Dates: start: 20070113

REACTIONS (2)
  - ANGINA PECTORIS [None]
  - ATRIOVENTRICULAR BLOCK COMPLETE [None]
